FAERS Safety Report 25575246 (Version 2)
Quarter: 2025Q3

REPORT INFORMATION
  Report Type: Report from Study
  Country: US (occurrence: US)
  Receive Date: 20250718
  Receipt Date: 20250730
  Transmission Date: 20251020
  Serious: No
  Sender: SUNOVION
  Company Number: US-SUMITOMO PHARMA SWITZERLAND GMBH-2025SPA008240

PATIENT

DRUGS (2)
  1. ORGOVYX [Suspect]
     Active Substance: RELUGOLIX
     Indication: Prostate cancer
     Route: 048
  2. ORGOVYX [Suspect]
     Active Substance: RELUGOLIX
     Route: 048
     Dates: start: 20250606

REACTIONS (8)
  - Paraesthesia [Unknown]
  - Exercise tolerance decreased [Unknown]
  - Dizziness [Unknown]
  - Fatigue [Unknown]
  - Hot flush [Unknown]
  - Blood glucose increased [Unknown]
  - Hyperhidrosis [Unknown]
  - Headache [Unknown]
